FAERS Safety Report 12635714 (Version 1)
Quarter: 2016Q3

REPORT INFORMATION
  Report Type: Report from Study
  Country: US (occurrence: US)
  Receive Date: 20160809
  Receipt Date: 20160809
  Transmission Date: 20161109
  Serious: Yes (Death, Life-Threatening, Hospitalization)
  Sender: FDA-Public Use
  Company Number: US-ROCHE-1588693

PATIENT
  Age: 61 Year
  Sex: Male
  Weight: 110.7 kg

DRUGS (18)
  1. LOMOTIL (UNITED STATES) [Concomitant]
     Indication: DIARRHOEA
     Route: 048
     Dates: start: 20141006, end: 20150211
  2. ZOFRAN [Concomitant]
     Active Substance: ONDANSETRON HYDROCHLORIDE
     Indication: VOMITING
  3. ZYRTEC [Concomitant]
     Active Substance: CETIRIZINE HYDROCHLORIDE
     Indication: SEASONAL ALLERGY
     Route: 048
     Dates: start: 20150505
  4. BENADRYL [Concomitant]
     Active Substance: DIPHENHYDRAMINE HYDROCHLORIDE
     Indication: SEASONAL ALLERGY
     Route: 048
     Dates: start: 20150505
  5. CLARITIN (UNITED STATES) [Concomitant]
     Indication: UPPER-AIRWAY COUGH SYNDROME
  6. ZYRTEC [Concomitant]
     Active Substance: CETIRIZINE HYDROCHLORIDE
     Indication: CONJUNCTIVAL HYPERAEMIA
  7. ATEZOLIZUMAB [Suspect]
     Active Substance: ATEZOLIZUMAB
     Indication: NEOPLASM MALIGNANT
     Dosage: MOST RECENT DOSE WAS 1200 MG ON 05/MAY/2015.
     Route: 042
     Dates: start: 20150121
  8. ZOFRAN [Concomitant]
     Active Substance: ONDANSETRON HYDROCHLORIDE
     Indication: NAUSEA
     Route: 048
     Dates: start: 20130722, end: 20150211
  9. IBUPROFEN. [Concomitant]
     Active Substance: IBUPROFEN
     Indication: ARTHRALGIA
     Route: 065
     Dates: start: 20150505
  10. BENADRYL [Concomitant]
     Active Substance: DIPHENHYDRAMINE HYDROCHLORIDE
     Indication: CONJUNCTIVAL HYPERAEMIA
  11. ALBUTEROL. [Concomitant]
     Active Substance: ALBUTEROL
     Indication: ASTHMA
     Dosage: 2 PUFFS
     Route: 055
     Dates: start: 20141024, end: 20150211
  12. COMPAZINE [Concomitant]
     Active Substance: PROCHLORPERAZINE MALEATE
     Indication: NAUSEA
     Route: 048
     Dates: start: 20130722, end: 20150211
  13. COMPAZINE [Concomitant]
     Active Substance: PROCHLORPERAZINE MALEATE
     Indication: VOMITING
  14. BENADRYL [Concomitant]
     Active Substance: DIPHENHYDRAMINE HYDROCHLORIDE
     Indication: UPPER-AIRWAY COUGH SYNDROME
  15. CLARITIN (UNITED STATES) [Concomitant]
     Indication: SEASONAL ALLERGY
     Route: 048
     Dates: start: 20150505
  16. COLACE [Concomitant]
     Active Substance: DOCUSATE SODIUM
     Indication: HAEMORRHOIDS
     Route: 048
     Dates: start: 20140611
  17. CLARITIN (UNITED STATES) [Concomitant]
     Indication: CONJUNCTIVAL HYPERAEMIA
  18. ZYRTEC [Concomitant]
     Active Substance: CETIRIZINE HYDROCHLORIDE
     Indication: UPPER-AIRWAY COUGH SYNDROME

REACTIONS (5)
  - Hypotension [Recovered/Resolved]
  - Hepatic failure [Fatal]
  - Renal failure [Recovered/Resolved]
  - Syncope [Recovered/Resolved]
  - Sinus tachycardia [Recovered/Resolved]

NARRATIVE: CASE EVENT DATE: 20150529
